FAERS Safety Report 8988649 (Version 1)
Quarter: 2012Q4

REPORT INFORMATION
  Report Type: 
  Country: US (occurrence: US)
  Receive Date: 20121228
  Receipt Date: 20121228
  Transmission Date: 20130627
  Serious: Yes (Other)
  Sender: FDA-Public Use
  Company Number: US-PFIZER INC-2012330551

PATIENT
  Age: 44 Year
  Sex: Female
  Weight: 99.77 kg

DRUGS (5)
  1. GEODON [Suspect]
     Indication: BIPOLAR DISORDER
     Dosage: 80 mg, 2x/day
     Route: 048
     Dates: start: 200209
  2. GEODON [Suspect]
     Indication: MOOD DISORDER NOS
  3. ALPRAZOLAM [Concomitant]
     Dosage: 0.5 mg, 4x/day
  4. TRAZODONE [Concomitant]
     Dosage: 200 mg, 1x/day
  5. VICODIN [Concomitant]
     Indication: PAIN
     Dosage: UNK, as needed

REACTIONS (2)
  - Road traffic accident [Unknown]
  - Wrist fracture [Not Recovered/Not Resolved]
